FAERS Safety Report 21805217 (Version 1)
Quarter: 2023Q1

REPORT INFORMATION
  Report Type: Report from Study
  Country: US (occurrence: US)
  Receive Date: 20230102
  Receipt Date: 20230102
  Transmission Date: 20230417
  Serious: No
  Sender: FDA-Public Use
  Company Number: US-ABBVIE-4223634

PATIENT
  Sex: Female

DRUGS (4)
  1. HUMIRA [Suspect]
     Active Substance: ADALIMUMAB
     Indication: Crohn^s disease
     Route: 058
  2. MODERNA COVID-19 VACCINE [Concomitant]
     Active Substance: ELASOMERAN
     Indication: COVID-19 immunisation
     Dosage: FREQUENCY 1 IN ONCE?1ST DOSE
     Route: 030
     Dates: start: 20210320, end: 20210320
  3. MODERNA COVID-19 VACCINE [Concomitant]
     Active Substance: ELASOMERAN
     Indication: COVID-19 immunisation
     Dosage: FREQUENCY 1 IN ONCE?2ND DOSE
     Route: 030
     Dates: start: 20210417, end: 20210417
  4. MODERNA COVID-19 VACCINE [Concomitant]
     Active Substance: ELASOMERAN
     Indication: COVID-19 immunisation
     Dosage: FREQUENCY 1 IN ONCE?3RD DOSE
     Route: 030
     Dates: start: 20220320, end: 20220320

REACTIONS (3)
  - Upper respiratory tract infection [Unknown]
  - Night sweats [Unknown]
  - Nasopharyngitis [Unknown]
